FAERS Safety Report 8567092 (Version 4)
Quarter: 2012Q4

REPORT INFORMATION
  Report Type: 
  Country: IT (occurrence: IT)
  Receive Date: 20120517
  Receipt Date: 20121115
  Transmission Date: 20130627
  Serious: Yes (Death, Hospitalization)
  Sender: FDA-Public Use
  Company Number: IT-CELGENEUS-083-21880-12032911

PATIENT
  Age: 75 Year
  Sex: Female

DRUGS (5)
  1. REVLIMID [Suspect]
     Indication: MYELOMA RECURRENCE
     Dosage: 25 Milligram
     Route: 048
     Dates: start: 20111114, end: 20111120
  2. SOLDESAM [Concomitant]
     Indication: DRUG USE FOR UNKNOWN INDICATION
     Dosage: 40 Milligram
     Route: 048
     Dates: start: 20111114, end: 20111114
  3. ALLOPURINOL [Concomitant]
     Indication: DRUG USE FOR UNKNOWN INDICATION
     Dosage: 300 Milligram
     Route: 048
     Dates: start: 20111114, end: 20111120
  4. CLEXANE [Concomitant]
     Indication: PROPHYLAXIS
     Dosage: 4000 IU (International Unit)
     Route: 058
     Dates: start: 20111114, end: 20111120
  5. DEXAMETHASONE [Concomitant]
     Indication: MYELOMA RECURRENCE
     Route: 065
     Dates: start: 20111114

REACTIONS (5)
  - Respiratory failure [Fatal]
  - Sepsis [Fatal]
  - Cardiac failure [Fatal]
  - Pneumonia [Fatal]
  - Plasma cell myeloma [Unknown]
